FAERS Safety Report 13451791 (Version 1)
Quarter: 2017Q2

REPORT INFORMATION
  Report Type: Spontaneous
  Country: US (occurrence: US)
  Receive Date: 20170418
  Receipt Date: 20170418
  Transmission Date: 20170830
  Serious: No
  Sender: FDA-Public Use
  Company Number: US-PFIZER INC-2017164326

PATIENT
  Sex: Female

DRUGS (1)
  1. XELJANZ [Suspect]
     Active Substance: TOFACITINIB CITRATE
     Dosage: 5 MG, UNK

REACTIONS (9)
  - Deformity [Recovering/Resolving]
  - Red blood cell sedimentation rate decreased [Recovering/Resolving]
  - Joint swelling [Recovering/Resolving]
  - Joint range of motion decreased [Recovering/Resolving]
  - Bone erosion [Recovering/Resolving]
  - Joint dislocation [Recovering/Resolving]
  - Arthralgia [Recovering/Resolving]
  - Synovitis [Recovering/Resolving]
  - Pain in extremity [Recovering/Resolving]
